FAERS Safety Report 19886998 (Version 1)
Quarter: 2021Q3

REPORT INFORMATION
  Report Type: Report from Study
  Country: FR (occurrence: FR)
  Receive Date: 20210927
  Receipt Date: 20210927
  Transmission Date: 20211014
  Serious: Yes (Death)
  Sender: FDA-Public Use
  Company Number: FR-GUERBET-FR-20210264

PATIENT
  Age: 77 Year
  Sex: Female

DRUGS (2)
  1. CYANOACRYLATE GLUE [Suspect]
     Active Substance: OCRYLATE
     Indication: THERAPEUTIC EMBOLISATION
     Dosage: LIPIODOL AND CYANOACRYLATE GLUE IN A MIXTURE OF 1:6
     Route: 013
  2. LIPIODOL [Suspect]
     Active Substance: ETHIODIZED OIL
     Indication: THERAPEUTIC EMBOLISATION
     Dosage: LIPIODOL AND CYANOACRYLATE GLUE IN A MIXTURE OF 1:6
     Route: 013

REACTIONS (1)
  - Circulatory collapse [Fatal]
